FAERS Safety Report 8360159-0 (Version None)
Quarter: 2012Q2

REPORT INFORMATION
  Report Type: 
  Country: None (occurrence: None)
  Receive Date: 20120515
  Receipt Date: 20110621
  Transmission Date: 20120825
  Serious: No
  Sender: FDA-Public Use
  Company Number: US-ALEXION-A201100918

PATIENT
  Sex: Female

DRUGS (8)
  1. VITAMIN D [Concomitant]
     Dosage: UNK
  2. FERROUS SULFATE TAB [Concomitant]
     Dosage: UNK
  3. SOLIRIS [Suspect]
     Indication: PAROXYSMAL NOCTURNAL HAEMOGLOBINURIA
     Dosage: UNK
     Route: 042
  4. MULTI-VITAMIN [Concomitant]
     Dosage: UNK
  5. FOLIC ACID [Concomitant]
     Dosage: UNK
  6. SYNTHROID [Concomitant]
     Dosage: UNK
  7. CALCIUM CARBONATE [Concomitant]
     Dosage: UNK
  8. GLUCOSAMINE [Concomitant]
     Dosage: UNK

REACTIONS (2)
  - BLOOD LACTATE DEHYDROGENASE INCREASED [None]
  - UPPER RESPIRATORY TRACT INFECTION [None]
